FAERS Safety Report 7392599-0 (Version None)
Quarter: 2011Q2

REPORT INFORMATION
  Report Type: 
  Country: None (occurrence: None)
  Receive Date: 20110404
  Receipt Date: 20110323
  Transmission Date: 20111010
  Serious: Yes (Death)
  Sender: FDA-Public Use
  Company Number: FI-CELGENEUS-055-21880-11031939

PATIENT
  Sex: Male
  Weight: 62 kg

DRUGS (15)
  1. RITUXIMAB [Suspect]
     Indication: MANTLE CELL LYMPHOMA
     Dosage: 700 MILLIGRAM
     Route: 051
     Dates: start: 20100930, end: 20110115
  2. POTASSIUM [Concomitant]
     Indication: HYPERTENSION
     Route: 065
  3. BENDAMUSTINE [Suspect]
     Indication: MANTLE CELL LYMPHOMA
     Dosage: 78 MILLIGRAM
     Route: 051
     Dates: start: 20101104, end: 20101105
  4. NEULASTA [Concomitant]
     Dosage: 6 MILLIGRAM
     Route: 058
     Dates: start: 20101004, end: 20110106
  5. REVLIMID [Suspect]
     Dosage: 10 MILLIGRAM
     Route: 048
     Dates: start: 20101104, end: 20101124
  6. GLIMEPIRIDE [Concomitant]
     Indication: DIABETES MELLITUS
     Route: 065
     Dates: start: 20060101
  7. ALLOPURINOL [Concomitant]
     Indication: PROPHYLAXIS
     Dosage: 300 MILLIGRAM
     Route: 065
     Dates: start: 20100924
  8. DIUREX [Concomitant]
     Indication: HYPERTENSION
     Route: 065
  9. TAMSULOSIN HCL [Concomitant]
     Indication: DIABETES MELLITUS
     Dosage: .4 MILLIGRAM
     Route: 065
  10. BACTRIM [Concomitant]
     Route: 065
     Dates: start: 20100924
  11. REVLIMID [Suspect]
     Dosage: 5 MILLIGRAM
     Route: 048
     Dates: end: 20110115
  12. TROMBYL [Concomitant]
     Route: 065
  13. REVLIMID [Suspect]
     Indication: MANTLE CELL LYMPHOMA
     Dosage: 15 MILLIGRAM
     Route: 048
     Dates: start: 20100930, end: 20101001
  14. BENDAMUSTINE [Suspect]
     Dosage: 147 MILLIGRAM
     Route: 051
     Dates: start: 20110105, end: 20110106
  15. NEUPOGEN [Concomitant]
     Route: 065

REACTIONS (2)
  - NEUTROPENIC INFECTION [None]
  - PNEUMONIA [None]
